FAERS Safety Report 6607551-X (Version None)
Quarter: 2010Q1

REPORT INFORMATION
  Report Type: 
  Country: None (occurrence: None)
  Receive Date: 20100301
  Receipt Date: 20100219
  Transmission Date: 20100710
  Serious: Yes (Other)
  Sender: FDA-Public Use
  Company Number: PHHY2009BR37321

PATIENT
  Sex: Female

DRUGS (7)
  1. TRILEPTAL [Suspect]
     Dosage: 600 MG, BID
     Route: 048
  2. TRILEPTAL [Suspect]
     Dosage: 600 MG, TID
     Route: 048
  3. TRILEPTAL [Suspect]
     Route: 048
  4. RIVOTRIL [Suspect]
     Indication: HEAD DISCOMFORT
     Dosage: 0.5 MG, BID
     Route: 048
  5. PURAN T4 [Suspect]
     Dosage: 100 UG, QD
  6. NEOSALDINA [Suspect]
     Indication: HEADACHE
     Dosage: UNK
  7. FENERGAN [Concomitant]
     Dosage: UNK

REACTIONS (8)
  - AMNESIA [None]
  - HEAD DISCOMFORT [None]
  - HEADACHE [None]
  - HYPERSENSITIVITY [None]
  - LARYNGEAL OEDEMA [None]
  - SWOLLEN TONGUE [None]
  - VISUAL IMPAIRMENT [None]
  - WEIGHT INCREASED [None]
